FAERS Safety Report 4356780-7 (Version None)
Quarter: 2004Q2

REPORT INFORMATION
  Report Type: 
  Country: None (occurrence: None)
  Receive Date: 20040507
  Receipt Date: 20040429
  Transmission Date: 20050107
  Serious: Yes (Hospitalization)
  Sender: FDA-Public Use
  Company Number: 2004-04-0281

PATIENT
  Age: 35 Year
  Sex: Male
  Weight: 86 kg

DRUGS (2)
  1. REBETOL [Suspect]
     Indication: HEPATITIS C
     Dosage: 1200 MG QD ORAL
     Route: 048
     Dates: start: 20040201
  2. PEGASYS [Suspect]
     Indication: HEPATITIS C
     Dosage: 180 MCG
     Dates: start: 20040201

REACTIONS (2)
  - BODY TEMPERATURE INCREASED [None]
  - PULMONARY INFARCTION [None]
